FAERS Safety Report 7082305-1 (Version None)
Quarter: 2010Q4

REPORT INFORMATION
  Report Type: 
  Country: None (occurrence: None)
  Receive Date: 20101104
  Receipt Date: 20101020
  Transmission Date: 20110411
  Serious: Yes (Hospitalization, Other)
  Sender: FDA-Public Use
  Company Number: US-RANBAXY-2010RR-39142

PATIENT
  Sex: Female

DRUGS (3)
  1. CIPROFLOXACIN [Suspect]
     Dosage: UNK
     Dates: start: 20030801
  2. LEVAQUIN [Suspect]
     Indication: SINUSITIS
     Dosage: UNK
     Dates: start: 19961201, end: 20030101
  3. LEVAQUIN [Suspect]
     Indication: INFECTION

REACTIONS (2)
  - LIGAMENT RUPTURE [None]
  - TENDON RUPTURE [None]
